FAERS Safety Report 24126184 (Version 2)
Quarter: 2024Q3

REPORT INFORMATION
  Report Type: Report from Study
  Country: CA (occurrence: CA)
  Receive Date: 20240723
  Receipt Date: 20240807
  Transmission Date: 20241017
  Serious: Yes (Hospitalization, Other)
  Sender: CSL BEHRING
  Company Number: CA-BEH-2024175710

PATIENT
  Age: 18 Year
  Sex: Male
  Weight: 57 kg

DRUGS (12)
  1. HIZENTRA [Suspect]
     Active Substance: HUMAN IMMUNOGLOBULIN G
     Indication: Secondary immunodeficiency
     Dosage: 3 G, QW
     Route: 065
     Dates: start: 20240419
  2. HIZENTRA [Suspect]
     Active Substance: HUMAN IMMUNOGLOBULIN G
     Dosage: 4 G, QW
     Route: 065
     Dates: start: 20240419
  3. ENTOCORT [Concomitant]
     Active Substance: BUDESONIDE
  4. CALCIUM [Concomitant]
     Active Substance: CALCIUM
  5. VITAMIN D [Concomitant]
     Active Substance: VITAMIN D NOS
  6. SILDENAFIL [Concomitant]
     Active Substance: SILDENAFIL
  7. METOPROLOL [Concomitant]
     Active Substance: METOPROLOL
  8. DIGOXIN [Concomitant]
     Active Substance: DIGOXIN
  9. SEPTRA DS [Concomitant]
     Active Substance: SULFAMETHOXAZOLE\TRIMETHOPRIM
  10. FUROSEMIDE [Concomitant]
     Active Substance: FUROSEMIDE
  11. SPIRONOLACTONE [Concomitant]
     Active Substance: SPIRONOLACTONE
  12. WARFARIN SODIUM [Concomitant]
     Active Substance: WARFARIN SODIUM

REACTIONS (3)
  - Heart transplant [Unknown]
  - Hospitalisation [Unknown]
  - Off label use [Unknown]
